FAERS Safety Report 6465753-X (Version None)
Quarter: 2009Q4

REPORT INFORMATION
  Report Type: 
  Country: None (occurrence: None)
  Receive Date: 20091201
  Receipt Date: 20081106
  Transmission Date: 20100525
  Serious: No
  Sender: FDA-Public Use
  Company Number: US-AMGEN-KDL317891

PATIENT
  Sex: Female

DRUGS (3)
  1. ENBREL [Suspect]
     Indication: RHEUMATOID ARTHRITIS
     Route: 058
     Dates: start: 20070601
  2. ENBREL [Suspect]
     Indication: PSORIATIC ARTHROPATHY
  3. ARAVA [Concomitant]
     Route: 048

REACTIONS (3)
  - BLOOD TEST ABNORMAL [None]
  - FINGER DEFORMITY [None]
  - INJECTION SITE PAIN [None]
